FAERS Safety Report 13047985 (Version 6)
Quarter: 2018Q2

REPORT INFORMATION
  Report Type: Spontaneous
  Country: US (occurrence: US)
  Receive Date: 20161220
  Receipt Date: 20180402
  Transmission Date: 20180711
  Serious: Yes (Hospitalization)
  Sender: FDA-Public Use
  Company Number: US-ACTELION-A-US2016-147133

PATIENT
  Age: 49 Year
  Sex: Male
  Weight: 76.19 kg

DRUGS (3)
  1. COUMADIN [Suspect]
     Active Substance: WARFARIN SODIUM
     Indication: PRODUCT USED FOR UNKNOWN INDICATION
     Route: 065
  2. MOXIFLOXACIN. [Suspect]
     Active Substance: MOXIFLOXACIN
     Indication: SINUSITIS
     Route: 065
  3. VELETRI [Suspect]
     Active Substance: EPOPROSTENOL
     Indication: PULMONARY HYPERTENSION
     Dosage: 25 NG/KG, PER MIN
     Route: 042
     Dates: start: 20111117, end: 20180216

REACTIONS (17)
  - Pneumothorax [Recovered/Resolved]
  - Acute respiratory failure [Recovered/Resolved]
  - Pneumonia [Recovered/Resolved]
  - Disease progression [Unknown]
  - Device related infection [Recovered/Resolved]
  - Sinusitis [Unknown]
  - International normalised ratio increased [Recovered/Resolved]
  - Epistaxis [Unknown]
  - Oxygen therapy [Unknown]
  - Catheter placement [Unknown]
  - Pseudomonas infection [Recovered/Resolved]
  - Medical device change [Unknown]
  - Dyspnoea [Unknown]
  - Lung transplant [Unknown]
  - Condition aggravated [Unknown]
  - Blood culture positive [Recovered/Resolved]
  - Chest tube insertion [Unknown]

NARRATIVE: CASE EVENT DATE: 20161127
